FAERS Safety Report 6658632-6 (Version None)
Quarter: 2010Q1

REPORT INFORMATION
  Report Type: 
  Country: None (occurrence: None)
  Receive Date: 20100330
  Receipt Date: 20100326
  Transmission Date: 20100710
  Serious: Yes (Other)
  Sender: FDA-Public Use
  Company Number: US-BRISTOL-MYERS SQUIBB COMPANY-15037948

PATIENT
  Sex: Female

DRUGS (1)
  1. REYATAZ [Suspect]

REACTIONS (2)
  - CAESAREAN SECTION [None]
  - PREGNANCY [None]
